FAERS Safety Report 17449280 (Version 2)
Quarter: 2020Q1

REPORT INFORMATION
  Report Type: Spontaneous
  Country: US (occurrence: US)
  Receive Date: 20200224
  Receipt Date: 20200302
  Transmission Date: 20200409
  Serious: Yes (Hospitalization, Other)
  Sender: FDA-Public Use
  Company Number: US-STRIDES ARCOLAB LIMITED-2020SP001756

PATIENT
  Age: 35 Year
  Sex: Male

DRUGS (6)
  1. BACLOFEN. [Interacting]
     Active Substance: BACLOFEN
     Indication: MUSCLE SPASMS
     Dosage: 460 MICROGRAM, QD, INTRATHECAL BACLOFEN PUMP PLACEMENT
     Route: 037
     Dates: start: 201812, end: 2019
  2. MEROPENEM. [Concomitant]
     Active Substance: MEROPENEM
     Indication: ANTIBIOTIC PROPHYLAXIS
     Dosage: UNK
     Route: 065
     Dates: start: 201903
  3. BACLOFEN. [Interacting]
     Active Substance: BACLOFEN
     Dosage: 20 MILLIGRAM, QID
     Route: 048
     Dates: start: 2019
  4. VANCOMYCIN [Suspect]
     Active Substance: VANCOMYCIN
     Indication: ANTIBIOTIC PROPHYLAXIS
     Dosage: UNK
     Route: 065
     Dates: start: 201903, end: 2019
  5. BACLOFEN. [Interacting]
     Active Substance: BACLOFEN
     Dosage: 30 MILLIGRAM, QID
     Route: 048
     Dates: start: 2019, end: 2019
  6. BACLOFEN. [Interacting]
     Active Substance: BACLOFEN
     Dosage: 115 MICROGRAM, QD
     Route: 037
     Dates: start: 2019, end: 2019

REACTIONS (8)
  - Encephalopathy [Recovered/Resolved]
  - Mental status changes [Recovered/Resolved]
  - Overdose [Unknown]
  - Unresponsive to stimuli [Recovered/Resolved]
  - Drug interaction [Unknown]
  - Toxicity to various agents [Recovered/Resolved]
  - Acute kidney injury [Recovered/Resolved]
  - Drug level increased [Recovered/Resolved]

NARRATIVE: CASE EVENT DATE: 2019
